FAERS Safety Report 22292728 (Version 1)
Quarter: 2023Q2

REPORT INFORMATION
  Report Type: Spontaneous
  Country: US (occurrence: US)
  Receive Date: 20230508
  Receipt Date: 20230508
  Transmission Date: 20230721
  Serious: No
  Sender: FDA-Public Use
  Company Number: US-AMGEN-USASP2023077482

PATIENT
  Sex: Female

DRUGS (3)
  1. OTEZLA [Suspect]
     Active Substance: APREMILAST
     Indication: Osteoarthritis
     Dosage: 30 MILLIGRAM, BID
     Route: 048
     Dates: start: 20220228, end: 20230502
  2. OTEZLA [Suspect]
     Active Substance: APREMILAST
     Indication: Off label use
  3. TYMLOS [Concomitant]
     Active Substance: ABALOPARATIDE
     Dosage: UNK
     Dates: end: 20230502

REACTIONS (2)
  - Illness [Unknown]
  - Off label use [Unknown]
